FAERS Safety Report 14983668 (Version 1)
Quarter: 2018Q2

REPORT INFORMATION
  Report Type: Spontaneous
  Country: CH (occurrence: CH)
  Receive Date: 20180607
  Receipt Date: 20180607
  Transmission Date: 20180711
  Serious: Yes (Other)
  Sender: FDA-Public Use
  Company Number: CH-ROCHE-2134053

PATIENT
  Age: 33 Year
  Sex: Female
  Weight: 99 kg

DRUGS (1)
  1. MABTHERA [Suspect]
     Active Substance: RITUXIMAB
     Indication: MYASTHENIA GRAVIS
     Route: 040
     Dates: start: 2017, end: 20180115

REACTIONS (6)
  - Maternal exposure before pregnancy [Unknown]
  - Off label use [Unknown]
  - Amniorrhoea [Unknown]
  - Intentional product use issue [Unknown]
  - Pelvic pain [Unknown]
  - Back pain [Unknown]

NARRATIVE: CASE EVENT DATE: 20180505
